FAERS Safety Report 18092314 (Version 1)
Quarter: 2020Q3

REPORT INFORMATION
  Report Type: Spontaneous
  Country: US (occurrence: US)
  Receive Date: 20200727
  Receipt Date: 20200727
  Transmission Date: 20201103
  Serious: Yes (Other)
  Sender: FDA-Public Use
  Company Number: None

PATIENT
  Sex: Female

DRUGS (2)
  1. LYCELLE HEAD LICE REMOVAL KIT [Suspect]
     Active Substance: CITRIC ACID MONOHYDRATE\CITRONELLYL ACETATE\ISOPROPYL ALCOHOL\METHYL SALICYLATE
  2. PERMETHRIN. [Suspect]
     Active Substance: PERMETHRIN

REACTIONS (1)
  - Therapy non-responder [None]
